FAERS Safety Report 8731320 (Version 5)
Quarter: 2013Q1

REPORT INFORMATION
  Report Type: Report from Study
  Country: US (occurrence: US)
  Receive Date: 20120820
  Receipt Date: 20130121
  Transmission Date: 20140127
  Serious: Yes (Hospitalization, Other)
  Sender: FDA-Public Use
  Company Number: US-JNJFOC-20120806376

PATIENT
  Age: 56 Year
  Sex: Female
  Weight: 63.5 kg

DRUGS (18)
  1. REMICADE [Suspect]
     Indication: RHEUMATOID ARTHRITIS
     Route: 042
     Dates: start: 20120830
  2. REMICADE [Suspect]
     Indication: RHEUMATOID ARTHRITIS
     Route: 042
     Dates: start: 20120814
  3. REMICADE [Suspect]
     Indication: RHEUMATOID ARTHRITIS
     Dosage: HAD RECEIVED 50 INFUSIONS
     Route: 042
     Dates: start: 20050426
  4. REMICADE [Suspect]
     Indication: RHEUMATOID ARTHRITIS
     Dosage: 0, 2 AND 6 WEEKS AND THEN EVERY 8 WEEKS
     Route: 042
  5. REMICADE [Suspect]
     Indication: RHEUMATOID ARTHRITIS
     Route: 042
     Dates: start: 20120911
  6. REMICADE [Suspect]
     Indication: RHEUMATOID ARTHRITIS
     Route: 042
     Dates: start: 20110920, end: 20110920
  7. PROTONIX [Concomitant]
     Route: 048
     Dates: start: 20120328
  8. LANTUS [Concomitant]
     Route: 050
  9. OXYCODONE [Concomitant]
     Dosage: 5-10 MG ORALLY EVERY 4 HOURS AS NEEDED
     Route: 048
  10. OXYCODONE [Concomitant]
     Route: 048
  11. AMARYL [Concomitant]
     Route: 048
  12. METHOTREXATE [Concomitant]
     Route: 048
  13. PREDNISONE [Concomitant]
     Route: 048
  14. OXYCONTIN [Concomitant]
     Route: 048
  15. NEURONTIN [Concomitant]
     Route: 048
  16. GLUCOPHAGE [Concomitant]
     Route: 048
  17. PRAVACHOL [Concomitant]
     Route: 048
     Dates: start: 20120622
  18. PROZAC [Concomitant]
     Route: 048

REACTIONS (9)
  - Back pain [Unknown]
  - Pyelonephritis acute [Recovered/Resolved]
  - Nephrolithiasis [Recovered/Resolved]
  - Osteomyelitis [Recovered/Resolved]
  - Bacteraemia [Recovered/Resolved]
  - Thrombophlebitis [Recovered/Resolved]
  - Type 2 diabetes mellitus [Not Recovered/Not Resolved]
  - Weight decreased [Unknown]
  - Musculoskeletal stiffness [Unknown]
